FAERS Safety Report 19360208 (Version 2)
Quarter: 2024Q1

REPORT INFORMATION
  Report Type: Spontaneous
  Country: GB (occurrence: GB)
  Receive Date: 20210601
  Receipt Date: 20240226
  Transmission Date: 20240409
  Serious: Yes (Death, Hospitalization, Other)
  Sender: FDA-Public Use
  Company Number: None

PATIENT
  Age: 5 Year
  Sex: Male

DRUGS (18)
  1. CISPLATIN [Suspect]
     Active Substance: CISPLATIN
     Indication: Brain cancer metastatic
     Dosage: UNK CYCLIC (TWO ROUNDS OF CHEMOTHERAPY)
     Route: 065
  2. CARBOPLATIN [Suspect]
     Active Substance: CARBOPLATIN
     Indication: Brain cancer metastatic
     Dosage: HIGH DOSE CONSOLIDATION THERAPY
  3. CYCLOPHOSPHAMIDE [Suspect]
     Active Substance: CYCLOPHOSPHAMIDE
     Indication: Brain cancer metastatic
     Dosage: UNK CYCLIC (TWO ROUNDS OF CHEMOTHERAPY)
  4. ETOPOSIDE [Suspect]
     Active Substance: ETOPOSIDE
     Indication: Neoplasm malignant
     Route: 065
  5. CYCLOPHOSPHAMIDE [Suspect]
     Active Substance: CYCLOPHOSPHAMIDE
     Indication: Neoplasm malignant
     Dosage: UNK
     Route: 065
  6. VINCRISTINE [Suspect]
     Active Substance: VINCRISTINE
     Indication: Neoplasm malignant
     Dosage: UNK
     Route: 065
  7. THIOTEPA [Suspect]
     Active Substance: THIOTEPA
     Indication: Brain cancer metastatic
     Dosage: HIGH DOSE CONSOLIDATION THERAPY
  8. VINCRISTINE [Suspect]
     Active Substance: VINCRISTINE
     Indication: Brain cancer metastatic
     Dosage: CYCLIC (TWO ROUNDS OF CHEMOTHERAPY)
  9. VEPESID [Suspect]
     Active Substance: ETOPOSIDE
     Indication: Brain cancer metastatic
     Dosage: UNK CYCLIC (TWO ROUNDS OF CHEMOTHERAPY
  10. APREPITANT [Concomitant]
     Active Substance: APREPITANT
  11. COTRIMOXAZOLE [Concomitant]
     Active Substance: SULFAMETHOXAZOLE\TRIMETHOPRIM
  12. DESMOPRESSIN [Concomitant]
     Active Substance: DESMOPRESSIN
  13. LENOGRASTIM [Concomitant]
     Active Substance: LENOGRASTIM
  14. LEVETIRACETAM [Concomitant]
     Active Substance: LEVETIRACETAM
  15. LOPERAMIDE [Concomitant]
     Active Substance: LOPERAMIDE
  16. METOCLOPRAMIDE [Concomitant]
     Active Substance: METOCLOPRAMIDE
  17. ONDANSETRON [Concomitant]
     Active Substance: ONDANSETRON
  18. VEPESID [Suspect]
     Active Substance: ETOPOSIDE
     Indication: Brain cancer metastatic
     Dosage: UNK CYCLIC (TWO ROUNDS OF CHEMOTHERAPY

REACTIONS (17)
  - Feeding disorder [Unknown]
  - Rectal prolapse [Unknown]
  - Death [Fatal]
  - Pain [Unknown]
  - Headache [Unknown]
  - Illness [Unknown]
  - Mouth ulceration [Unknown]
  - Diarrhoea [Unknown]
  - Malignant neoplasm progression [Unknown]
  - Neoplasm malignant [Unknown]
  - Acute kidney injury [Unknown]
  - Seizure [Unknown]
  - Pancytopenia [Unknown]
  - Mucosal inflammation [Unknown]
  - Intestinal prolapse [Unknown]
  - Neutropenic sepsis [Unknown]
  - Haemorrhage intracranial [Fatal]

NARRATIVE: CASE EVENT DATE: 20190101
